FAERS Safety Report 21160579 (Version 2)
Quarter: 2022Q3

REPORT INFORMATION
  Report Type: Spontaneous
  Country: US (occurrence: US)
  Receive Date: 20220802
  Receipt Date: 20220914
  Transmission Date: 20221026
  Serious: No
  Sender: FDA-Public Use
  Company Number: US-BAYER-2022A107544

PATIENT
  Age: 50 Year
  Sex: Female

DRUGS (1)
  1. CLIMARA [Suspect]
     Active Substance: ESTRADIOL
     Dosage: 0.05MG/1D 4TTSM US
     Route: 062

REACTIONS (2)
  - Device adhesion issue [None]
  - Incorrect dose administered by device [None]
